FAERS Safety Report 22311170 (Version 2)
Quarter: 2023Q2

REPORT INFORMATION
  Report Type: Spontaneous
  Country: US (occurrence: US)
  Receive Date: 20230511
  Receipt Date: 20230525
  Transmission Date: 20230721
  Serious: Yes (Death)
  Sender: FDA-Public Use
  Company Number: US-TEVA-2023-US-2884653

PATIENT
  Age: 84 Year
  Sex: Male

DRUGS (5)
  1. OXYCODONE [Suspect]
     Active Substance: OXYCODONE
     Indication: Trigeminal neuralgia
     Route: 065
  2. RABIES IMMUNE GLOBULIN (HUMAN) [Suspect]
     Active Substance: RABIES IMMUNE GLOBULIN (HUMAN)
     Indication: Immunisation
     Dosage: TOTAL DOSE OF 20 IU/KG WITH AS MUCH AS POSSIBLE INFILTRATED AT THE BITE SITE AND THE REMAINING ADMIN
     Route: 065
  3. RABIES VACCINE [Suspect]
     Active Substance: RABIES VACCINE
     Indication: Immunisation
     Route: 065
  4. CARBAMAZEPINE [Concomitant]
     Active Substance: CARBAMAZEPINE
     Indication: Trigeminal neuralgia
     Route: 065
  5. NOREPINEPHRINE [Concomitant]
     Active Substance: NOREPINEPHRINE
     Indication: Labile blood pressure
     Route: 065

REACTIONS (2)
  - Drug ineffective [Fatal]
  - Nausea [Unknown]
